FAERS Safety Report 9254285 (Version 1)
Quarter: 2013Q2

REPORT INFORMATION
  Report Type: Spontaneous
  Country: IT (occurrence: None)
  Receive Date: 20130419
  Receipt Date: 20130419
  Transmission Date: 20140414
  Serious: Yes (Hospitalization)
  Sender: FDA-Public Use
  Company Number: DSM-2013-00393

PATIENT
  Age: 67 Year
  Sex: Male

DRUGS (5)
  1. OLMESARTAN MEDOXOMIL [Suspect]
     Indication: HYPERTENSION
     Dosage: (20 MG, 1 IN 1 D), ORAL
     Route: 048
     Dates: start: 20060101, end: 20130108
  2. CARDIOASPIRIN (ACETYLSALICYLIC ACID) (ACETYLSALICYLIC ACID ) [Concomitant]
  3. PANTOPRAZOLE (PANTOPRAZOLE) (PANTOPRAZOLE) [Concomitant]
  4. MESALAZINE (MESALAZINE) (MESALAZINE) [Concomitant]
  5. RIFAXIMIN (RIFAXIMIN) (RIFAXIMIN) [Concomitant]

REACTIONS (3)
  - Clonus [None]
  - Generalised oedema [None]
  - Malabsorption [None]
